FAERS Safety Report 22049708 (Version 2)
Quarter: 2023Q1

REPORT INFORMATION
  Report Type: Report from Study
  Country: US (occurrence: US)
  Receive Date: 20230301
  Receipt Date: 20230307
  Transmission Date: 20230418
  Serious: No
  Sender: FDA-Public Use
  Company Number: US-002147023-NVSC2023US046262

PATIENT
  Sex: Male

DRUGS (1)
  1. ENTRESTO [Suspect]
     Active Substance: SACUBITRIL\VALSARTAN
     Indication: Product used for unknown indication
     Dosage: 0.5 DOSAGE FORM, BID
     Route: 048
     Dates: start: 20230203

REACTIONS (5)
  - Visual impairment [Not Recovered/Not Resolved]
  - Blood pressure decreased [Unknown]
  - Concomitant disease aggravated [Unknown]
  - Wrong technique in product usage process [Unknown]
  - Prescribed underdose [Unknown]
